FAERS Safety Report 7138784-4 (Version None)
Quarter: 2010Q4

REPORT INFORMATION
  Report Type: 
  Country: None (occurrence: None)
  Receive Date: 20101206
  Receipt Date: 20101130
  Transmission Date: 20110411
  Serious: Yes (Hospitalization)
  Sender: FDA-Public Use
  Company Number: ES-AMGEN-ESPCT2010006930

PATIENT
  Sex: Female

DRUGS (4)
  1. PANITUMUMAB [Suspect]
     Indication: COLORECTAL CANCER METASTATIC
     Dosage: UNK UNK, Q2WK
     Route: 042
     Dates: start: 20101108
  2. OXALIPLATIN [Concomitant]
     Dosage: 147 MG, Q2WK
     Route: 042
     Dates: start: 20101108
  3. LEUCOVORIN CALCIUM [Concomitant]
     Dosage: 332 MG, UNK
     Route: 042
     Dates: start: 20101108
  4. 5-FU                               /00098801/ [Concomitant]
     Dosage: UNK
     Dates: start: 20101108

REACTIONS (2)
  - ASTHENIA [None]
  - CONSTIPATION [None]
